FAERS Safety Report 9535368 (Version 5)
Quarter: 2014Q1

REPORT INFORMATION
  Report Type: Spontaneous
  Country: US (occurrence: US)
  Receive Date: 20130918
  Receipt Date: 20140213
  Transmission Date: 20141002
  Serious: Yes (Hospitalization, Other)
  Sender: FDA-Public Use
  Company Number: US-009507513-1309USA005422

PATIENT
  Sex: Female
  Weight: 68.93 kg

DRUGS (14)
  1. FOSAMAX [Suspect]
     Indication: OSTEOPOROSIS
     Dosage: 10 MG, QD
     Route: 048
     Dates: start: 19990607, end: 20060524
  2. FOSAMAX [Suspect]
     Dosage: 70 MG, QW
     Route: 048
     Dates: end: 20060524
  3. FOSAMAX PLUS D [Suspect]
     Indication: OSTEOPOROSIS
     Dosage: 70 MG/2800IU, QW
     Route: 048
     Dates: start: 20070112, end: 20080430
  4. ALENDRONATE SODIUM [Suspect]
     Indication: OSTEOPOROSIS
     Dosage: 70 MG, UNK
     Dates: start: 20081020, end: 20111225
  5. ASPIRIN [Concomitant]
     Dosage: UNK
     Dates: start: 1999
  6. ASCORBIC ACID [Concomitant]
     Dosage: UNK
     Dates: start: 1970
  7. MORPHINE SULFATE [Concomitant]
     Indication: PAIN
     Dosage: UNK
     Dates: start: 2001
  8. HYDROCODONE [Concomitant]
     Indication: PAIN
     Dosage: UNK
     Dates: start: 200104
  9. MS CONTIN [Concomitant]
     Indication: BACK PAIN
     Dosage: 15 MG, HS
     Dates: start: 19990607
  10. MS CONTIN [Concomitant]
     Dosage: 15 MG, BID
  11. MS CONTIN [Concomitant]
     Dosage: 15 MG, TID
  12. VICODIN [Concomitant]
     Indication: BACK PAIN
     Dosage: 4 DF, QD
  13. ULTRAM [Concomitant]
     Indication: BACK PAIN
  14. AMITRIPTYLINE HYDROCHLORIDE [Concomitant]
     Indication: BACK PAIN
     Dosage: 25 MG, HS
     Route: 048
     Dates: start: 19990929

REACTIONS (75)
  - Femur fracture [Unknown]
  - Intramedullary rod insertion [Unknown]
  - Femoral neck fracture [Unknown]
  - Hip arthroplasty [Recovering/Resolving]
  - Hip arthroplasty [Unknown]
  - Cardiac arrest [Unknown]
  - Myocardial infarction [Unknown]
  - Low turnover osteopathy [Unknown]
  - Calcium deficiency [Unknown]
  - Hypertension [Unknown]
  - Hyperlipidaemia [Unknown]
  - Bacterial infection [Unknown]
  - Depression [Unknown]
  - Bacterial infection [Unknown]
  - Fluid retention [Unknown]
  - Urinary tract infection [Unknown]
  - Extra dose administered [Unknown]
  - Limb injury [Unknown]
  - Clavicle fracture [Unknown]
  - Impaired healing [Unknown]
  - Pseudarthrosis [Unknown]
  - Rotator cuff syndrome [Unknown]
  - Osteoarthritis [Unknown]
  - Rib deformity [Unknown]
  - Venous occlusion [Recovered/Resolved]
  - Venous thrombosis [Recovered/Resolved]
  - Hepatitis C [Unknown]
  - Coronary artery disease [Unknown]
  - Haemochromatosis [Unknown]
  - Bronchitis [Unknown]
  - Intervertebral disc degeneration [Unknown]
  - Adverse event [Unknown]
  - Dystrophic calcification [Unknown]
  - Osteoarthritis [Unknown]
  - Pubis fracture [Recovered/Resolved]
  - Fall [Unknown]
  - Cystitis [Unknown]
  - Spinal compression fracture [Unknown]
  - Capillary disorder [Unknown]
  - Liver disorder [Unknown]
  - Anxiety [Unknown]
  - Fatigue [Unknown]
  - Drug dependence [Unknown]
  - Arthropathy [Unknown]
  - Pollakiuria [Unknown]
  - Dyspnoea [Unknown]
  - Vitamin D deficiency [Unknown]
  - Thrombophlebitis [Unknown]
  - Urinary tract infection [Unknown]
  - Atrial fibrillation [Unknown]
  - Anaemia [Unknown]
  - Atrial fibrillation [Unknown]
  - Delirium [Unknown]
  - Dementia [Unknown]
  - Emphysema [Unknown]
  - Angina pectoris [Unknown]
  - Back disorder [Unknown]
  - Ulcer [Unknown]
  - Atrophy [Unknown]
  - Personality disorder [Unknown]
  - Thrombocytosis [Unknown]
  - Somnolence [Unknown]
  - Pain [Not Recovered/Not Resolved]
  - Exostosis [Unknown]
  - Glucose tolerance impaired [Unknown]
  - Urinary incontinence [Unknown]
  - Hypoalbuminaemia [Unknown]
  - Left ventricular dysfunction [Unknown]
  - Excoriation [Unknown]
  - Analgesic therapy [Unknown]
  - Fall [Unknown]
  - Tachycardia [Unknown]
  - Back pain [Unknown]
  - Arthralgia [Unknown]
  - Constipation [Unknown]
